FAERS Safety Report 10953255 (Version 1)
Quarter: 2015Q1

REPORT INFORMATION
  Report Type: Spontaneous
  Country: GB (occurrence: None)
  Receive Date: 20150323
  Receipt Date: 20150323
  Transmission Date: 20150721
  Serious: Yes (Other)
  Sender: FDA-Public Use
  Company Number: 2015RN000017

PATIENT
  Sex: Female

DRUGS (1)
  1. ACICLOVIR (ACICLOVIR) TABLET [Suspect]
     Active Substance: ACYCLOVIR
     Indication: HERPES ZOSTER
     Dosage: 800 MG, FIVE TABLETS A DAY FOR 7 DAYS, TRANSMAMMARY
     Route: 063

REACTIONS (3)
  - Vomiting [None]
  - Exposure during breast feeding [None]
  - Malaise [None]
